FAERS Safety Report 9674602 (Version 1)
Quarter: 2013Q4

REPORT INFORMATION
  Report Type: Spontaneous
  Country: US (occurrence: None)
  Receive Date: 20131106
  Receipt Date: 20131106
  Transmission Date: 20140711
  Serious: Yes (Hospitalization)
  Sender: FDA-Public Use
  Company Number: None

PATIENT
  Age: 63 None
  Sex: Female
  Weight: 86.18 kg

DRUGS (6)
  1. IBANDRONATE SODIUM [Suspect]
     Indication: OSTEOPOROSIS
     Dosage: 3/1 PER MO. 1 P13 MO ??A MONTH LATER
     Route: 048
     Dates: start: 20130930
  2. IBANDRONATE SODIUM [Suspect]
     Indication: HYPERTENSION
     Dosage: 3/1 PER MO. 1 P13 MO ??A MONTH LATER
     Route: 048
     Dates: start: 20130930
  3. VALSARTAN HCTZ [Concomitant]
  4. ATORVASTATIN [Concomitant]
  5. TRICOR TABLETS [Concomitant]
  6. VITAMIN D [Concomitant]

REACTIONS (12)
  - Malaise [None]
  - Vomiting [None]
  - Headache [None]
  - Muscle spasms [None]
  - Abasia [None]
  - Back pain [None]
  - Pain in extremity [None]
  - Pain in extremity [None]
  - Pain in extremity [None]
  - Feeling abnormal [None]
  - Unevaluable event [None]
  - Activities of daily living impaired [None]
